FAERS Safety Report 15144310 (Version 1)
Quarter: 2018Q3

REPORT INFORMATION
  Report Type: Spontaneous
  Country: US (occurrence: US)
  Receive Date: 20180713
  Receipt Date: 20180713
  Transmission Date: 20181010
  Serious: No
  Sender: FDA-Public Use
  Company Number: US-NOVOPROD-597151

PATIENT
  Age: 61 Year
  Sex: Male

DRUGS (1)
  1. FIASP [Suspect]
     Active Substance: INSULIN ASPART
     Indication: PRODUCT USED FOR UNKNOWN INDICATION
     Dosage: 60 U, QD
     Route: 058
     Dates: start: 201804, end: 201804

REACTIONS (3)
  - Wrong technique in product usage process [Recovered/Resolved]
  - Insulin resistance [Recovered/Resolved]
  - Therapeutic response changed [Recovered/Resolved]

NARRATIVE: CASE EVENT DATE: 201804
